FAERS Safety Report 15934648 (Version 1)
Quarter: 2019Q1

REPORT INFORMATION
  Report Type: Spontaneous
  Country: JP (occurrence: JP)
  Receive Date: 20190207
  Receipt Date: 20190207
  Transmission Date: 20190417
  Serious: Yes (Death)
  Sender: FDA-Public Use
  Company Number: GXJP2019JP000545

PATIENT
  Age: 90 Year
  Sex: Male
  Weight: 46 kg

DRUGS (9)
  1. VALSARTAN. [Suspect]
     Active Substance: VALSARTAN
     Indication: PRODUCT USED FOR UNKNOWN INDICATION
     Dosage: 80 MG, UNK
     Route: 048
  2. BAYASPIRIN [Concomitant]
     Active Substance: ASPIRIN
     Indication: PRODUCT USED FOR UNKNOWN INDICATION
     Dosage: 100 MG, UNK
     Route: 065
  3. PREDNISOLONE. [Concomitant]
     Active Substance: PREDNISOLONE
     Indication: PRODUCT USED FOR UNKNOWN INDICATION
     Dosage: 20 MG, UNK
     Route: 048
  4. PREDNISOLONE. [Concomitant]
     Active Substance: PREDNISOLONE
     Dosage: 10 MG, UNK
     Route: 048
  5. ETHINYLESTRADIOL [Concomitant]
     Active Substance: ETHINYL ESTRADIOL
     Indication: PRODUCT USED FOR UNKNOWN INDICATION
     Dosage: 1 MG, UNK
     Route: 065
  6. PREDNISOLONE. [Concomitant]
     Active Substance: PREDNISOLONE
     Dosage: 30 MG, UNK
     Route: 048
  7. LEVOFLOXACIN MESYLATE [Concomitant]
     Active Substance: LEVOFLOXACIN
     Indication: IDIOPATHIC INTERSTITIAL PNEUMONIA
     Dosage: 500 MG, UNK
     Route: 048
  8. PREDNISOLONE. [Concomitant]
     Active Substance: PREDNISOLONE
     Dosage: 20 MG, UNK
     Route: 048
  9. LANSOPRAZOLE. [Concomitant]
     Active Substance: LANSOPRAZOLE
     Indication: PRODUCT USED FOR UNKNOWN INDICATION
     Dosage: 15 MG, UNK
     Route: 065

REACTIONS (10)
  - Cough [Fatal]
  - Abdominal pain upper [Fatal]
  - Idiopathic interstitial pneumonia [Fatal]
  - Bradycardia [Fatal]
  - Decreased appetite [Fatal]
  - Pyrexia [Fatal]
  - Dyspnoea [Fatal]
  - Blood gases abnormal [Fatal]
  - Disseminated intravascular coagulation [Fatal]
  - Altered state of consciousness [Fatal]
